FAERS Safety Report 19653622 (Version 6)
Quarter: 2021Q3

REPORT INFORMATION
  Report Type: Spontaneous
  Country: CH (occurrence: CH)
  Receive Date: 20210803
  Receipt Date: 20210907
  Transmission Date: 20211014
  Serious: Yes (Hospitalization, Other)
  Sender: FDA-Public Use
  Company Number: CH-ALXN-A202108618

PATIENT
  Age: 52 Year
  Sex: Female
  Weight: 83 kg

DRUGS (2)
  1. ULTOMIRIS [Suspect]
     Active Substance: RAVULIZUMAB-CWVZ
     Dosage: 3300 MG EVERY 8 WEEKS
     Route: 042
     Dates: start: 20210105, end: 20210617
  2. ULTOMIRIS [Suspect]
     Active Substance: RAVULIZUMAB-CWVZ
     Indication: PAROXYSMAL NOCTURNAL HAEMOGLOBINURIA
     Dosage: 2700 MG
     Route: 042
     Dates: start: 20201222, end: 20201222

REACTIONS (12)
  - Haemolysis [Recovered/Resolved]
  - Viral infection [Recovered/Resolved]
  - Chromaturia [Recovering/Resolving]
  - SARS-CoV-2 test negative [Unknown]
  - Dizziness [Recovering/Resolving]
  - Abdominal pain [Recovered/Resolved]
  - Nausea [Recovering/Resolving]
  - Urinary tract infection [Recovered/Resolved]
  - Breakthrough haemolysis [Recovered/Resolved]
  - Urinary incontinence [Recovered/Resolved]
  - General physical health deterioration [Recovering/Resolving]
  - Bladder pain [Recovered/Resolved]

NARRATIVE: CASE EVENT DATE: 20210208
